FAERS Safety Report 7781829-9 (Version None)
Quarter: 2011Q3

REPORT INFORMATION
  Report Type: 
  Country: None (occurrence: None)
  Receive Date: 20110927
  Receipt Date: 20110922
  Transmission Date: 20111222
  Serious: Yes (Other)
  Sender: FDA-Public Use
  Company Number: AR-BRISTOL-MYERS SQUIBB COMPANY-15979065

PATIENT
  Age: 48 Year
  Sex: Male

DRUGS (6)
  1. LOTRIAL [Suspect]
  2. RITONAVIR [Suspect]
  3. ACETYLSALICYLIC ACID SRT [Suspect]
  4. REYATAZ [Suspect]
     Indication: HIV INFECTION
  5. ATENOLOL [Suspect]
  6. CLOPIDOGREL BISULFATE [Suspect]

REACTIONS (8)
  - NAUSEA [None]
  - DYSPEPSIA [None]
  - INCREASED APPETITE [None]
  - ABDOMINAL PAIN [None]
  - PNEUMONIA [None]
  - HEPATIC ENZYME INCREASED [None]
  - PERICARDITIS CONSTRICTIVE [None]
  - SWELLING [None]
